FAERS Safety Report 16946475 (Version 1)
Quarter: 2019Q4

REPORT INFORMATION
  Report Type: Spontaneous
  Country: AE (occurrence: AE)
  Receive Date: 20191022
  Receipt Date: 20191022
  Transmission Date: 20200122
  Serious: Yes (Hospitalization, Other)
  Sender: FDA-Public Use
  Company Number: AE-ASTRAZENECA-2019SF46266

PATIENT
  Age: 25849 Day
  Sex: Female

DRUGS (3)
  1. IMFINZI [Suspect]
     Active Substance: DURVALUMAB
     Indication: NON-SMALL CELL LUNG CANCER STAGE III
     Dosage: 10MG-KG/BIWEEKLY
     Route: 042
     Dates: start: 20190722
  2. PLANTINUM-BASED CHEMOTHERAPY [Concomitant]
     Indication: CHEMOTHERAPY
  3. RADIATION THERAPY [Concomitant]
     Active Substance: RADIATION THERAPY

REACTIONS (1)
  - Diabetic coma [Recovered/Resolved]

NARRATIVE: CASE EVENT DATE: 20191010
